FAERS Safety Report 10399406 (Version 1)
Quarter: 2014Q3

REPORT INFORMATION
  Report Type: Spontaneous
  Country: US (occurrence: None)
  Receive Date: 20140818
  Receipt Date: 20140818
  Transmission Date: 20150326
  Serious: Yes (Disabling, Other)
  Sender: FDA-Public Use
  Company Number: None

PATIENT
  Age: 43 Year
  Weight: 99.79 kg

DRUGS (1)
  1. LIPITOR [Suspect]
     Active Substance: ATORVASTATIN CALCIUM
     Indication: BLOOD CHOLESTEROL
     Dosage: 1 TAB QD  ONCE DAILY  TAKEN BY MOUTH
     Route: 048

REACTIONS (15)
  - Muscular weakness [None]
  - Pain [None]
  - Myalgia [None]
  - Headache [None]
  - Arthralgia [None]
  - Back pain [None]
  - Swelling [None]
  - Musculoskeletal stiffness [None]
  - General physical health deterioration [None]
  - Fatigue [None]
  - Discomfort [None]
  - Insomnia [None]
  - Visual impairment [None]
  - Walking aid user [None]
  - Bone pain [None]

NARRATIVE: CASE EVENT DATE: 20140817
